FAERS Safety Report 19970388 (Version 1)
Quarter: 2021Q4

REPORT INFORMATION
  Report Type: Spontaneous
  Country: US (occurrence: US)
  Receive Date: 20211019
  Receipt Date: 20211019
  Transmission Date: 20220304
  Serious: Yes (Other)
  Sender: FDA-Public Use
  Company Number: US-MYLANLABS-2021M1071802

PATIENT
  Age: 76 Year
  Sex: Male

DRUGS (5)
  1. TETRACYCLINE [Suspect]
     Active Substance: TETRACYCLINE
     Indication: Dermatitis herpetiformis
     Dosage: UNK
     Route: 065
  2. NICOTINIC ACID [Suspect]
     Active Substance: NIACIN
     Indication: Dermatitis herpetiformis
     Dosage: UNK
     Route: 065
  3. DOXYCYCLINE [Suspect]
     Active Substance: DOXYCYCLINE
     Indication: Dermatitis herpetiformis
     Dosage: UNK
     Route: 065
  4. APREMILAST [Suspect]
     Active Substance: APREMILAST
     Indication: Dermatitis herpetiformis
     Dosage: UNK
     Route: 065
  5. SULFASALAZINE [Suspect]
     Active Substance: SULFASALAZINE
     Indication: Dermatitis herpetiformis
     Dosage: UNK
     Route: 065

REACTIONS (1)
  - Drug ineffective [Unknown]
